FAERS Safety Report 25119923 (Version 3)
Quarter: 2025Q2

REPORT INFORMATION
  Report Type: Report from Study
  Country: AE (occurrence: AE)
  Receive Date: 20250325
  Receipt Date: 20250507
  Transmission Date: 20250716
  Serious: Yes (Death, Hospitalization, Other)
  Sender: TAIHO ONCOLOGY INC
  Company Number: AE-SERVIER-S25003677

PATIENT
  Age: 61 Year
  Sex: Male

DRUGS (1)
  1. LONSURF [Suspect]
     Active Substance: TIPIRACIL HYDROCHLORIDE\TRIFLURIDINE
     Indication: Colorectal cancer
     Route: 048
     Dates: start: 202502, end: 202503

REACTIONS (3)
  - Pyrexia [Fatal]
  - Dyspnoea [Fatal]
  - Spinal fracture [Unknown]

NARRATIVE: CASE EVENT DATE: 20250327
